FAERS Safety Report 12571070 (Version 2)
Quarter: 2016Q3

REPORT INFORMATION
  Report Type: Spontaneous
  Country: US (occurrence: US)
  Receive Date: 20160719
  Receipt Date: 20160725
  Transmission Date: 20161109
  Serious: Yes (Other)
  Sender: FDA-Public Use
  Company Number: US-PFIZER INC-2016348710

PATIENT
  Age: 57 Year
  Sex: Female
  Weight: 66.2 kg

DRUGS (1)
  1. LYRICA [Suspect]
     Active Substance: PREGABALIN
     Indication: PAIN
     Dosage: 100MG, ONE CAPSULE DAILY
     Route: 048

REACTIONS (4)
  - Pain [Not Recovered/Not Resolved]
  - Intentional underdose [Not Recovered/Not Resolved]
  - Suicidal ideation [Unknown]
  - Condition aggravated [Not Recovered/Not Resolved]
